FAERS Safety Report 5922463-2 (Version None)
Quarter: 2008Q4

REPORT INFORMATION
  Report Type: 
  Country: None (occurrence: None)
  Receive Date: 20081017
  Receipt Date: 20081003
  Transmission Date: 20090506
  Serious: Yes (Hospitalization)
  Sender: FDA-Public Use
  Company Number: FR-ALLERGAN-0813011US

PATIENT
  Sex: Male

DRUGS (6)
  1. TROSPIUM CHLORIDE [Suspect]
     Indication: URINARY TRACT DISORDER
     Dosage: 20 MG, BID
     Route: 048
     Dates: start: 20070101, end: 20070101
  2. TROSPIUM CHLORIDE [Suspect]
     Dosage: 20 MG, TID
     Route: 048
     Dates: start: 20070101, end: 20070101
  3. SINEMET [Concomitant]
     Dosage: 100 MG, QID
  4. AVLOCARDYL [Concomitant]
     Dosage: 20 MG, QID
  5. TEMESTA [Concomitant]
     Dosage: 1.25 MG, QHS
  6. DEPAKOTE [Concomitant]
     Dosage: 500 MG, Q12H

REACTIONS (1)
  - CONFUSIONAL STATE [None]
